FAERS Safety Report 24155293 (Version 1)
Quarter: 2024Q3

REPORT INFORMATION
  Report Type: Spontaneous
  Country: US (occurrence: US)
  Receive Date: 20240731
  Receipt Date: 20240731
  Transmission Date: 20241016
  Serious: Yes (Other)
  Sender: STEMLINE THERAPEUTICS
  Company Number: US-Stemline Therapeutics, Inc.-2024ST004520

PATIENT
  Age: 42 Year
  Sex: Female

DRUGS (8)
  1. ORSERDU [Suspect]
     Active Substance: ELACESTRANT
     Indication: Product used for unknown indication
     Route: 048
     Dates: start: 20240621
  2. ORSERDU [Suspect]
     Active Substance: ELACESTRANT
     Route: 048
  3. BETAINE HCL [Concomitant]
     Indication: Product used for unknown indication
  4. GUGLIPID/BIOPRINE [Concomitant]
     Indication: Product used for unknown indication
  5. SERRATA [Concomitant]
     Indication: Product used for unknown indication
  6. COLLOIDAL [Concomitant]
     Indication: Product used for unknown indication
  7. COENZYME Q10 [Concomitant]
     Active Substance: DIETARY SUPPLEMENT\UBIDECARENONE
     Indication: Product used for unknown indication
  8. PREDNISONE [Concomitant]
     Active Substance: PREDNISONE
     Indication: Product used for unknown indication

REACTIONS (2)
  - Lung neoplasm malignant [Not Recovered/Not Resolved]
  - Dyspnoea [Not Recovered/Not Resolved]
